FAERS Safety Report 5918517-7 (Version None)
Quarter: 2008Q4

REPORT INFORMATION
  Report Type: 
  Country: None (occurrence: None)
  Receive Date: 20081014
  Receipt Date: 20081014
  Transmission Date: 20090506
  Serious: Yes (Other)
  Sender: FDA-Public Use
  Company Number: None

PATIENT
  Sex: Male
  Weight: 68.0396 kg

DRUGS (2)
  1. OXYCONTIN [Suspect]
     Indication: PAIN
     Dosage: 1 TABLET 3 TIMES DAILY PO
     Route: 048
     Dates: start: 20080715, end: 20081007
  2. OXYCODONE HCL EXTENDED-RELEASE [Suspect]
     Indication: PAIN
     Dosage: 1 TABLET 3 TIMES DAILY PO
     Route: 048
     Dates: start: 20081008, end: 20081012

REACTIONS (3)
  - PRODUCT QUALITY ISSUE [None]
  - PRURITUS [None]
  - RASH [None]
